FAERS Safety Report 6698309-4 (Version None)
Quarter: 2010Q2

REPORT INFORMATION
  Report Type: 
  Country: None (occurrence: None)
  Receive Date: 20100427
  Receipt Date: 20100419
  Transmission Date: 20101027
  Serious: Yes (Hospitalization)
  Sender: FDA-Public Use
  Company Number: NL-MEDIMMUNE-MEDI-0010714

PATIENT
  Sex: Male
  Weight: 6 kg

DRUGS (6)
  1. SYNAGIS [Suspect]
     Route: 030
     Dates: start: 20091204, end: 20100222
  2. PHENOBARBITAL [Concomitant]
  3. THEOPHYLLINE [Concomitant]
  4. HYDROCHLOROTHIAZIDE [Concomitant]
  5. SPIRONOLACTONE [Concomitant]
  6. SODIUM CITRATE DRINK [Concomitant]

REACTIONS (3)
  - DYSPHAGIA [None]
  - RESPIRATORY TRACT INFECTION [None]
  - SALIVARY HYPERSECRETION [None]
